FAERS Safety Report 21773539 (Version 2)
Quarter: 2022Q4

REPORT INFORMATION
  Report Type: Spontaneous
  Country: GB (occurrence: GB)
  Receive Date: 20221223
  Receipt Date: 20221228
  Transmission Date: 20230113
  Serious: Yes (Life-Threatening, Hospitalization, Other)
  Sender: FDA-Public Use
  Company Number: GB-SA-SAC20221214000846

PATIENT
  Age: 80 Year
  Sex: Male

DRUGS (12)
  1. FUROSEMIDE [Suspect]
     Active Substance: FUROSEMIDE
     Indication: Cardiac failure
     Dosage: ONCE DAILY
     Route: 065
  2. RAMIPRIL [Suspect]
     Active Substance: RAMIPRIL
     Indication: Cardiac failure
     Dosage: UNK
     Route: 065
  3. RAMIPRIL [Concomitant]
     Active Substance: RAMIPRIL
     Indication: Coronary artery disease
     Dosage: 5 MILLIGRAMS (MG) AND ONCE DAILY
     Route: 048
     Dates: start: 202008, end: 20210906
  4. FUROSEMIDE [Concomitant]
     Active Substance: FUROSEMIDE
     Indication: Cardiac failure
     Dosage: 40 MILLIGRAMS (MG) AND ONCE DAILY
     Route: 048
     Dates: start: 2017
  5. ALLOPURINOL [Concomitant]
     Active Substance: ALLOPURINOL
     Indication: Gout
     Dosage: 100 MILLIGRAMS (MG) AND ONCE DAILY
     Route: 065
     Dates: start: 202008
  6. ATORVASTATIN [Concomitant]
     Active Substance: ATORVASTATIN
     Indication: Coronary artery disease
     Dosage: 80 MILLIGRAMS (MG) AND ONCE DAILY
     Route: 065
     Dates: start: 2012
  7. EDOXABAN [Concomitant]
     Active Substance: EDOXABAN
     Indication: Atrial fibrillation
     Dosage: 30 MILLIGRAMS (MG) AND ONCE DAILY
     Route: 065
     Dates: start: 202008
  8. ENOXAPARIN [Concomitant]
     Active Substance: ENOXAPARIN
     Dosage: UNK
     Route: 065
  9. EPLERENONE [Concomitant]
     Active Substance: EPLERENONE
     Route: 065
  10. LEVOTHYROXINE [Concomitant]
     Active Substance: LEVOTHYROXINE
     Indication: Hypothyroidism
     Dosage: 50 MICROGRAMS (UG) AND ONCE DAILY
     Route: 048
     Dates: start: 2017
  11. LOPERAMIDE [Concomitant]
     Active Substance: LOPERAMIDE
     Indication: Diarrhoea
     Dosage: 16 MILLIGRAMS (MG) AND ONCE DAILY
     Route: 048
     Dates: start: 2021
  12. SOTALOL [Concomitant]
     Active Substance: SOTALOL
     Indication: Atrial fibrillation
     Dosage: 160 MILLIGRAMS (MG) AND ONCE DAILY
     Route: 048
     Dates: start: 202008

REACTIONS (16)
  - Small intestinal obstruction [Recovered/Resolved with Sequelae]
  - Acute kidney injury [Recovered/Resolved with Sequelae]
  - Colorectal cancer [Recovered/Resolved]
  - Urinary tract obstruction [Recovered/Resolved]
  - Urosepsis [Recovered/Resolved]
  - Cardiac amyloidosis [Unknown]
  - Thrombosis [Recovered/Resolved]
  - Dysuria [Recovered/Resolved]
  - Pollakiuria [Recovered/Resolved]
  - Gastrointestinal stoma output decreased [Recovered/Resolved]
  - Ejection fraction [Recovered/Resolved]
  - Penile pain [Recovered/Resolved]
  - Circulatory collapse [Recovered/Resolved]
  - Vomiting [Recovered/Resolved]
  - Dyspnoea [Recovered/Resolved]
  - Dehydration [Recovered/Resolved]

NARRATIVE: CASE EVENT DATE: 20210905
